FAERS Safety Report 5258246-9 (Version None)
Quarter: 2007Q1

REPORT INFORMATION
  Report Type: 
  Country: None (occurrence: None)
  Receive Date: 20070305
  Receipt Date: 20070216
  Transmission Date: 20070707
  Serious: Yes (Hospitalization)
  Sender: FDA-Public Use
  Company Number: 222348

PATIENT
  Age: 61 Year
  Sex: Male
  Weight: 141.1 kg

DRUGS (2)
  1. AVASTIN [Suspect]
     Indication: HEPATIC NEOPLASM MALIGNANT
     Dosage: 345 MG, QD, INTRAVENOUS
     Route: 042
     Dates: start: 20060606
  2. MORPHINE SULFATE [Suspect]
     Indication: DRUG USE FOR UNKNOWN INDICATION

REACTIONS (3)
  - ABDOMINAL PAIN [None]
  - ASTHENIA [None]
  - SOMNOLENCE [None]
